FAERS Safety Report 11516610 (Version 2)
Quarter: 2015Q3

REPORT INFORMATION
  Report Type: Spontaneous
  Country: RU (occurrence: RU)
  Receive Date: 20150917
  Receipt Date: 20150923
  Transmission Date: 20151125
  Serious: Yes (Other)
  Sender: FDA-Public Use
  Company Number: RU-NOVOPROD-456308

PATIENT
  Age: 74 Year
  Sex: Female
  Weight: 98 kg

DRUGS (3)
  1. NOVOMIX 30 PENFILL [Suspect]
     Active Substance: INSULIN ASPART
     Indication: TYPE 2 DIABETES MELLITUS
     Dosage: 52 U, QD (22-10-20)
     Route: 058
     Dates: start: 2002
  2. NOVOMIX 30 PENFILL [Suspect]
     Active Substance: INSULIN ASPART
     Dosage: UNK
     Route: 058
  3. SIOFOR [Concomitant]
     Active Substance: METFORMIN HYDROCHLORIDE
     Indication: TYPE 2 DIABETES MELLITUS
     Dosage: 1000 MG, QD
     Route: 048
     Dates: start: 2013

REACTIONS (4)
  - Myocardial ischaemia [Recovered/Resolved]
  - Product deposit [Unknown]
  - Incorrect product storage [Unknown]
  - Hypertension [Recovered/Resolved]

NARRATIVE: CASE EVENT DATE: 20150708
